FAERS Safety Report 4637934-9 (Version None)
Quarter: 2005Q2

REPORT INFORMATION
  Report Type: 
  Country: None (occurrence: None)
  Receive Date: 20050328
  Receipt Date: 20050119
  Transmission Date: 20051028
  Serious: No
  Sender: FDA-Public Use
  Company Number: USA050188708

PATIENT
  Sex: Female

DRUGS (2)
  1. STRATTERA [Suspect]
     Dates: start: 20040101
  2. ZOLOFT [Concomitant]

REACTIONS (1)
  - BLOOD CHOLESTEROL INCREASED [None]
